FAERS Safety Report 10067266 (Version 1)
Quarter: 2014Q2

REPORT INFORMATION
  Report Type: Spontaneous
  Country: US (occurrence: US)
  Receive Date: 20140409
  Receipt Date: 20140409
  Transmission Date: 20141212
  Serious: Yes (Other)
  Sender: FDA-Public Use
  Company Number: US-AMGEN-USASP2014024777

PATIENT
  Age: 63 Year
  Sex: Male

DRUGS (1)
  1. ENBREL [Suspect]
     Indication: RHEUMATOID ARTHRITIS
     Dosage: UNK UNK, QWK
     Route: 065
     Dates: start: 201403

REACTIONS (4)
  - Coronary arterial stent insertion [Recovered/Resolved]
  - Insomnia [Recovered/Resolved]
  - Oxygen saturation decreased [Recovered/Resolved]
  - Peripheral swelling [Recovered/Resolved]
